FAERS Safety Report 7760366-1 (Version None)
Quarter: 2011Q3

REPORT INFORMATION
  Report Type: 
  Country: None (occurrence: None)
  Receive Date: 20110919
  Receipt Date: 20110913
  Transmission Date: 20111222
  Serious: Yes (Hospitalization)
  Sender: FDA-Public Use
  Company Number: PHHO2011AU03696

PATIENT
  Sex: Female

DRUGS (4)
  1. IMATINIB MESYLATE [Suspect]
     Dosage: 400 MG, UNK
     Route: 048
     Dates: start: 20110316
  2. MICARDIS [Concomitant]
     Indication: HYPERTENSION
  3. LEVOTHYROXINE SODIUM [Concomitant]
     Indication: HYPOTHYROIDISM
  4. IMATINIB MESYLATE [Suspect]
     Indication: CHRONIC MYELOID LEUKAEMIA
     Dosage: 400 MG, UNK
     Route: 048
     Dates: start: 20100601, end: 20110225

REACTIONS (1)
  - LIVER FUNCTION TEST ABNORMAL [None]
